FAERS Safety Report 8277282-1 (Version None)
Quarter: 2012Q2

REPORT INFORMATION
  Report Type: 
  Country: None (occurrence: None)
  Receive Date: 20120412
  Receipt Date: 20120403
  Transmission Date: 20120825
  Serious: Yes (Disabling)
  Sender: FDA-Public Use
  Company Number: US-GLAXOSMITHKLINE-A0969745A

PATIENT
  Age: 33 Year
  Sex: Female

DRUGS (6)
  1. MALARONE [Suspect]
     Indication: MALARIA PROPHYLAXIS
     Route: 048
     Dates: start: 20111008, end: 20111009
  2. DESOGESTREL AND ETHINYL ESTRADIOL [Concomitant]
  3. RESTASIS [Concomitant]
  4. FISH OIL [Concomitant]
  5. NOVOCAIN [Concomitant]
  6. MEFLOQUINE HYDROCHLORIDE [Suspect]
     Indication: MALARIA PROPHYLAXIS
     Dosage: 1TAB WEEKLY
     Route: 065
     Dates: start: 20111009

REACTIONS (30)
  - NAUSEA [None]
  - FEELING ABNORMAL [None]
  - OROPHARYNGEAL PAIN [None]
  - TACHYCARDIA [None]
  - DYSPNOEA [None]
  - ILL-DEFINED DISORDER [None]
  - CHEST PAIN [None]
  - CARDIAC FLUTTER [None]
  - PALPITATIONS [None]
  - MIGRAINE [None]
  - THROAT TIGHTNESS [None]
  - HEART RATE INCREASED [None]
  - VISION BLURRED [None]
  - ANXIETY DISORDER [None]
  - NASOPHARYNGITIS [None]
  - ANGINA PECTORIS [None]
  - ANXIETY [None]
  - CHEST DISCOMFORT [None]
  - MENTAL IMPAIRMENT [None]
  - NERVOUSNESS [None]
  - SLUGGISHNESS [None]
  - SLEEP DISORDER [None]
  - INITIAL INSOMNIA [None]
  - SUICIDAL IDEATION [None]
  - HEADACHE [None]
  - OXYGEN SATURATION DECREASED [None]
  - FATIGUE [None]
  - SENSATION OF BLOOD FLOW [None]
  - ABNORMAL DREAMS [None]
  - DIZZINESS [None]
